FAERS Safety Report 22130344 (Version 1)
Quarter: 2023Q1

REPORT INFORMATION
  Report Type: Spontaneous
  Country: US (occurrence: US)
  Receive Date: 20230323
  Receipt Date: 20230323
  Transmission Date: 20230417
  Serious: Yes (Other)
  Sender: FDA-Public Use
  Company Number: US-JNJFOC-20230331924

PATIENT
  Age: 71 Year
  Sex: Female
  Weight: 42.676 kg

DRUGS (1)
  1. SIRTURO [Suspect]
     Active Substance: BEDAQUILINE FUMARATE
     Indication: Atypical mycobacterial infection
     Route: 048
     Dates: start: 20230302

REACTIONS (7)
  - Deafness [Unknown]
  - Decreased appetite [Unknown]
  - Dizziness [Unknown]
  - Tinnitus [Unknown]
  - Nausea [Unknown]
  - Headache [Unknown]
  - Off label use [Unknown]
